FAERS Safety Report 4285073-1 (Version None)
Quarter: 2004Q1

REPORT INFORMATION
  Report Type: 
  Country: None (occurrence: None)
  Receive Date: 20040202
  Receipt Date: 20040121
  Transmission Date: 20041129
  Serious: No
  Sender: FDA-Public Use
  Company Number: 04P-163-0248288-00

PATIENT
  Sex: Female

DRUGS (1)
  1. SYNTHROID [Suspect]

REACTIONS (7)
  - ACNE [None]
  - ALOPECIA [None]
  - BREAST DISCHARGE [None]
  - COMPLICATIONS OF MATERNAL EXPOSURE TO THERAPEUTIC DRUGS [None]
  - ECTOPIC PREGNANCY [None]
  - ECZEMA [None]
  - FATIGUE [None]
